FAERS Safety Report 9899409 (Version 1)
Quarter: 2014Q1

REPORT INFORMATION
  Report Type: Spontaneous
  Country: US (occurrence: US)
  Receive Date: 20140214
  Receipt Date: 20140214
  Transmission Date: 20141002
  Serious: Yes (Death, Hospitalization, Other)
  Sender: FDA-Public Use
  Company Number: US-TEVA-462411USA

PATIENT
  Age: 41 Year
  Sex: Female

DRUGS (9)
  1. CLONAZEPAM [Suspect]
     Route: 065
  2. PROPOFOL [Suspect]
     Indication: AGITATION
     Route: 050
  3. PROPOFOL [Suspect]
     Route: 065
  4. LITHIUM [Suspect]
     Route: 065
  5. ZIPRASIDONE [Suspect]
     Route: 065
  6. SUXAMETHONIUM CHLORIDE [Suspect]
     Dosage: SINGLE DOSE GIVEN
     Route: 065
  7. BENZATROPINE [Concomitant]
     Route: 065
  8. CLOMIPRAMINE [Concomitant]
     Route: 065
  9. LAMOTRIGINE [Concomitant]
     Route: 065

REACTIONS (3)
  - Neuroleptic malignant syndrome [Recovering/Resolving]
  - Hyperthermia malignant [Recovering/Resolving]
  - Death [Fatal]
